FAERS Safety Report 24095111 (Version 1)
Quarter: 2024Q3

REPORT INFORMATION
  Report Type: Report from Study
  Country: JP (occurrence: None)
  Receive Date: 20240716
  Receipt Date: 20240716
  Transmission Date: 20241017
  Serious: Yes (Death)
  Sender: ASTRAZENECA
  Company Number: 2021A294548

PATIENT
  Age: 44 Year
  Sex: Male
  Weight: 62 kg

DRUGS (3)
  1. IMFINZI [Suspect]
     Active Substance: DURVALUMAB
     Indication: Non-small cell lung cancer
     Route: 041
     Dates: start: 20200812, end: 20200812
  2. IMFINZI [Suspect]
     Active Substance: DURVALUMAB
     Indication: Non-small cell lung cancer
     Route: 041
     Dates: start: 20210313, end: 20210612
  3. PREDNISOLONE [Concomitant]
     Active Substance: PREDNISOLONE
     Dosage: 2 MG
     Dates: start: 20210415

REACTIONS (4)
  - Radiation pneumonitis [Recovering/Resolving]
  - Pyrexia [Recovered/Resolved]
  - Haemoptysis [Fatal]
  - Asphyxia [Fatal]

NARRATIVE: CASE EVENT DATE: 20200829
